FAERS Safety Report 9080388 (Version 1)
Quarter: 2013Q1

REPORT INFORMATION
  Report Type: Spontaneous
  Country: IT (occurrence: IT)
  Receive Date: 20130130
  Receipt Date: 20130130
  Transmission Date: 20140127
  Serious: Yes (Life-Threatening, Hospitalization)
  Sender: FDA-Public Use
  Company Number: IT-ELI_LILLY_AND_COMPANY-IT201301007571

PATIENT
  Age: 49 Year
  Sex: Female

DRUGS (5)
  1. ZYPREXA [Suspect]
     Dosage: 1 DF, UNKNOWN
     Route: 048
  2. ZYPREXA [Suspect]
     Dosage: 10 DF, SINGLE
     Dates: start: 20120924, end: 20120924
  3. LORAZEPAM [Concomitant]
     Dosage: 15 MG, QD
     Route: 048
  4. DICLOFENAC [Concomitant]
     Dosage: 1 DF, UNKNOWN
  5. DICLOFENAC [Concomitant]
     Dosage: 15 DF, SINGLE
     Route: 048
     Dates: start: 20120924, end: 20120924

REACTIONS (3)
  - Toxicity to various agents [Recovering/Resolving]
  - Coma [Recovering/Resolving]
  - Overdose [Recovered/Resolved]
